FAERS Safety Report 19091613 (Version 1)
Quarter: 2021Q2

REPORT INFORMATION
  Report Type: Spontaneous
  Country: US (occurrence: US)
  Receive Date: 20210405
  Receipt Date: 20210405
  Transmission Date: 20210717
  Serious: Yes (Hospitalization)
  Sender: FDA-Public Use
  Company Number: US-ELI_LILLY_AND_COMPANY-US202103012964

PATIENT
  Sex: Female

DRUGS (2)
  1. HUMALOG KWIKPEN [Suspect]
     Active Substance: INSULIN LISPRO
     Dosage: 4?6 U, UNKNOWN (WHEN OFF STEROIDS)
     Route: 065
     Dates: end: 202102
  2. HUMALOG KWIKPEN [Suspect]
     Active Substance: INSULIN LISPRO
     Indication: PRODUCT USED FOR UNKNOWN INDICATION
     Dosage: 12 U, UNKNOWN (WHEN ON STEROIDS)
     Route: 065
     Dates: end: 202102

REACTIONS (2)
  - Asthma [Unknown]
  - Blood glucose increased [Unknown]
